FAERS Safety Report 8419016-3 (Version None)
Quarter: 2012Q2

REPORT INFORMATION
  Report Type: 
  Country: None (occurrence: None)
  Receive Date: 20120607
  Receipt Date: 20120604
  Transmission Date: 20120825
  Serious: Yes (Other)
  Sender: FDA-Public Use
  Company Number: PHEH2012US011291

PATIENT

DRUGS (1)
  1. RECLAST [Suspect]
     Dosage: UNK
     Route: 042

REACTIONS (1)
  - TOOTH FRACTURE [None]
